FAERS Safety Report 6574458 (Version 2)
Quarter: 2013Q3

REPORT INFORMATION
  Report Type: Spontaneous
  Country: FR (occurrence: FR)
  Receive Date: 20080310
  Receipt Date: 20130724
  Transmission Date: 20140515
  Serious: Yes (Other)
  Sender: FDA-Public Use
  Company Number: FR-BRISTOL-MYERS SQUIBB COMPANY-14040224

PATIENT
  Age: 49 Year
  Sex: Male
  Weight: 57 kg

DRUGS (4)
  1. REYATAZ CAPS [Suspect]
     Dates: start: 20060608, end: 20080219
  2. ZIAGEN [Suspect]
     Dates: start: 20060608, end: 20080219
  3. NORVIR [Concomitant]
     Dates: start: 20060608, end: 20080219
  4. VIDEX [Concomitant]
     Dates: start: 20060608, end: 20080219

REACTIONS (3)
  - Renal failure [Not Recovered/Not Resolved]
  - Nephrolithiasis [Not Recovered/Not Resolved]
  - Renal colic [Not Recovered/Not Resolved]
